FAERS Safety Report 6933067-7 (Version None)
Quarter: 2010Q3

REPORT INFORMATION
  Report Type: 
  Country: None (occurrence: None)
  Receive Date: 20100819
  Receipt Date: 20100812
  Transmission Date: 20110219
  Serious: Yes (Other)
  Sender: FDA-Public Use
  Company Number: US-ABBOTT-10P-163-0657417-00

PATIENT
  Sex: Female

DRUGS (2)
  1. HUMIRA [Suspect]
     Indication: PSORIASIS
     Route: 058
     Dates: start: 20100510
  2. HUMIRA [Concomitant]
     Indication: PSORIASIS
     Route: 058
     Dates: start: 20100330

REACTIONS (1)
  - AMAUROSIS FUGAX [None]
